FAERS Safety Report 5645119-2 (Version None)
Quarter: 2008Q1

REPORT INFORMATION
  Report Type: 
  Country: None (occurrence: None)
  Receive Date: 20080229
  Receipt Date: 20080218
  Transmission Date: 20080703
  Serious: Yes (Death, Disabling)
  Sender: FDA-Public Use
  Company Number: CH-ROCHE-545038

PATIENT
  Age: 26 Year
  Sex: Male
  Weight: 63 kg

DRUGS (5)
  1. ROACCUTAN [Suspect]
     Indication: ACNE
     Route: 048
     Dates: start: 19941109, end: 19950220
  2. ROACCUTAN [Suspect]
     Dosage: DOSAGE REDUCED
     Route: 048
     Dates: start: 19950220, end: 19950719
  3. ROACCUTAN [Suspect]
     Dosage: DOSAGE INCREASED
     Route: 048
     Dates: start: 19951122, end: 19960207
  4. ROACCUTAN [Suspect]
     Dosage: DOSAGE REDUCED
     Route: 048
     Dates: start: 19960207, end: 19960306
  5. ROACCUTAN [Suspect]
     Dosage: DOSAGE REDUCED
     Route: 048
     Dates: start: 19960306, end: 19960612

REACTIONS (2)
  - COMPLETED SUICIDE [None]
  - HALLUCINATION [None]
